FAERS Safety Report 19734715 (Version 1)
Quarter: 2021Q3

REPORT INFORMATION
  Report Type: Spontaneous
  Country: IN (occurrence: IN)
  Receive Date: 20210824
  Receipt Date: 20210824
  Transmission Date: 20211014
  Serious: Yes (Other)
  Sender: FDA-Public Use
  Company Number: IN-ASSERTIO THERAPEUTICS, INC.-IN-2021AST000154

PATIENT
  Age: 70 Year
  Sex: Male

DRUGS (2)
  1. DICLOFENAC [Suspect]
     Active Substance: DICLOFENAC
     Indication: BACK PAIN
     Dosage: 50 MG, TID
  2. TELMISARTAN. [Suspect]
     Active Substance: TELMISARTAN
     Indication: BLOOD PRESSURE ABNORMAL
     Dosage: 40 MG, QD

REACTIONS (4)
  - Nodal arrhythmia [Unknown]
  - Hyperkalaemia [Unknown]
  - Syncope [Unknown]
  - Acute kidney injury [Unknown]
